FAERS Safety Report 9035479 (Version 1)
Quarter: 2013Q1

REPORT INFORMATION
  Report Type: Report from Study
  Country: US (occurrence: US)
  Receive Date: 20130129
  Receipt Date: 20130129
  Transmission Date: 20140127
  Serious: No
  Sender: FDA-Public Use
  Company Number: US-ABBOTT-12P-163-0909018-00

PATIENT
  Age: 54 Year
  Sex: Female

DRUGS (4)
  1. HUMIRA 40 MG/0.8 ML PEN [Suspect]
     Indication: CROHN^S DISEASE
     Dates: start: 20111229
  2. VITAMIN C [Concomitant]
     Indication: NUTRITIONAL SUPPLEMENTATION
  3. VITAMIN D [Concomitant]
     Indication: NUTRITIONAL SUPPLEMENTATION
  4. ECHINACEA [Concomitant]
     Indication: NUTRITIONAL SUPPLEMENTATION

REACTIONS (4)
  - Tooth disorder [Not Recovered/Not Resolved]
  - Tooth fracture [Not Recovered/Not Resolved]
  - Gingival swelling [Not Recovered/Not Resolved]
  - Musculoskeletal stiffness [Not Recovered/Not Resolved]
